FAERS Safety Report 15617421 (Version 1)
Quarter: 2018Q4

REPORT INFORMATION
  Report Type: Spontaneous
  Country: US (occurrence: US)
  Receive Date: 20181112
  Receipt Date: 20181112
  Transmission Date: 20190205
  Serious: Yes (Hospitalization)
  Sender: FDA-Public Use
  Company Number: None

PATIENT
  Age: 62 Year
  Sex: Male
  Weight: 116.6 kg

DRUGS (4)
  1. SITAGLIPTIN [Concomitant]
     Active Substance: SITAGLIPTIN
  2. METFORMIN [Concomitant]
     Active Substance: METFORMIN HYDROCHLORIDE
  3. INVOKANA [Suspect]
     Active Substance: CANAGLIFLOZIN
     Indication: TYPE 2 DIABETES MELLITUS
     Route: 048
  4. ENALAPRIL [Concomitant]
     Active Substance: ENALAPRIL

REACTIONS (4)
  - Beta haemolytic streptococcal infection [None]
  - Necrotising fasciitis [None]
  - Scrotal infection [None]
  - Wound [None]

NARRATIVE: CASE EVENT DATE: 20181107
